FAERS Safety Report 9297944 (Version 2)
Quarter: 2014Q2

REPORT INFORMATION
  Report Type: Spontaneous
  Country: US (occurrence: US)
  Receive Date: 20130520
  Receipt Date: 20140426
  Transmission Date: 20141212
  Serious: Yes (Life-Threatening, Hospitalization, Disabling, Other)
  Sender: FDA-Public Use
  Company Number: US-JNJFOC-20130508042

PATIENT
  Age: 16 Year
  Sex: Female

DRUGS (3)
  1. TYLENOL [Suspect]
     Route: 048
  2. TYLENOL [Suspect]
     Indication: HEADACHE
     Route: 048
     Dates: start: 201105
  3. MOTRIN [Suspect]
     Indication: HEADACHE
     Route: 048
     Dates: start: 201105

REACTIONS (4)
  - Toxic epidermal necrolysis [Recovering/Resolving]
  - Stevens-Johnson syndrome [Recovering/Resolving]
  - Septic shock [Unknown]
  - Hepatic failure [Unknown]
